FAERS Safety Report 4311212-X (Version None)
Quarter: 2004Q1

REPORT INFORMATION
  Report Type: 
  Country: None (occurrence: None)
  Receive Date: 20040301
  Receipt Date: 20040119
  Transmission Date: 20041129
  Serious: No
  Sender: FDA-Public Use
  Company Number: WAES 0401USA01356

PATIENT
  Age: 55 Year
  Sex: Male

DRUGS (2)
  1. ZETIA [Suspect]
     Dosage: 10MG/UNK/PO
     Route: 048
  2. (THERAPY UNSPECIFIED) [Concomitant]

REACTIONS (1)
  - LOOSE STOOLS [None]
